FAERS Safety Report 4746252-X (Version None)
Quarter: 2005Q3

REPORT INFORMATION
  Report Type: 
  Country: None (occurrence: None)
  Receive Date: 20050816
  Receipt Date: 20050805
  Transmission Date: 20060218
  Serious: Yes (Hospitalization)
  Sender: FDA-Public Use
  Company Number: KII-2005-0017892

PATIENT
  Age: 50 Year
  Sex: Male

DRUGS (4)
  1. MORPHINE SULFATE [Suspect]
     Indication: PAIN
     Dosage: ORAL
     Route: 048
  2. IBUPROFEN [Suspect]
     Dosage: ORAL
     Route: 048
  3. BENAZEPRIL HCL [Suspect]
     Dosage: ORAL
     Route: 048
  4. FLUOXETINE [Suspect]
     Dosage: ORAL
     Route: 048

REACTIONS (9)
  - BLOOD POTASSIUM INCREASED [None]
  - FLUSHING [None]
  - HEART RATE INCREASED [None]
  - HYPERHIDROSIS [None]
  - HYPERREFLEXIA [None]
  - MENINGITIS [None]
  - METABOLIC ACIDOSIS [None]
  - MIOSIS [None]
  - RENAL FAILURE ACUTE [None]
